FAERS Safety Report 11279453 (Version 1)
Quarter: 2015Q3

REPORT INFORMATION
  Report Type: Spontaneous
  Country: US (occurrence: None)
  Receive Date: 20150716
  Receipt Date: 20150716
  Transmission Date: 20151125
  Serious: No
  Sender: FDA-Public Use
  Company Number: None

PATIENT
  Age: 72 Year
  Sex: Male
  Weight: 101.8 kg

DRUGS (1)
  1. PSYLLIUM [Suspect]
     Active Substance: PLANTAGO SEED
     Indication: DIARRHOEA
     Route: 048
     Dates: start: 20150115, end: 20150415

REACTIONS (3)
  - Flatulence [None]
  - Abdominal pain [None]
  - Abdominal distension [None]

NARRATIVE: CASE EVENT DATE: 20150415
